FAERS Safety Report 4390654-0 (Version None)
Quarter: 2004Q2

REPORT INFORMATION
  Report Type: 
  Country: None (occurrence: None)
  Receive Date: 20040630
  Receipt Date: 20040615
  Transmission Date: 20050107
  Serious: Yes (Life-Threatening, Hospitalization)
  Sender: FDA-Public Use
  Company Number: 2004-BP-04447BP

PATIENT
  Age: 69 Year
  Sex: Male
  Weight: 83.9 kg

DRUGS (5)
  1. MOBIC [Suspect]
     Indication: ARTHRITIS
     Dosage: 15 MG (15 MG, 1 QD), PO
     Route: 048
     Dates: start: 20040512, end: 20040530
  2. LIPITOR [Concomitant]
  3. NIASPAN [Concomitant]
  4. ACETYLSALICYLIC ACID SRT [Concomitant]
  5. UNIRETIC (PRIMOX PLUS) [Concomitant]

REACTIONS (6)
  - BLOOD PRESSURE DECREASED [None]
  - GASTRIC ULCER [None]
  - GASTROINTESTINAL HAEMORRHAGE [None]
  - HAEMATEMESIS [None]
  - HAEMOGLOBIN DECREASED [None]
  - HELICOBACTER INFECTION [None]
